FAERS Safety Report 4732089-4 (Version None)
Quarter: 2005Q3

REPORT INFORMATION
  Report Type: 
  Country: None (occurrence: None)
  Receive Date: 20050725
  Receipt Date: 20041123
  Transmission Date: 20060218
  Serious: Yes (Hospitalization)
  Sender: FDA-Public Use
  Company Number: 23100209

PATIENT
  Age: 64 Year
  Sex: Female

DRUGS (13)
  1. ARGATROBAN [Suspect]
     Indication: THROMBOSIS PROPHYLAXIS
     Dosage: 2 MCG/KG/MIN CONT IV
     Route: 042
     Dates: start: 20041103, end: 20041103
  2. POSACONAZOLE [Suspect]
     Indication: FUNGAL INFECTION
     Dosage: 400 MG BID PO
     Route: 048
     Dates: start: 20040907
  3. PRAVACHOL [Concomitant]
  4. VALACYCLOVIR HCL [Concomitant]
  5. SENNA [Concomitant]
  6. COLACE [Concomitant]
  7. ASPIRIN [Concomitant]
  8. PREDNISONE [Concomitant]
  9. NEPHRO-VITE [Concomitant]
  10. PROTONIX [Concomitant]
  11. ALLEGRA [Concomitant]
  12. TACROLIMUS [Concomitant]
  13. CELLCEPT [Concomitant]

REACTIONS (1)
  - GASTROINTESTINAL HAEMORRHAGE [None]
